FAERS Safety Report 9214203 (Version 1)
Quarter: 2013Q2

REPORT INFORMATION
  Report Type: Spontaneous
  Country: US (occurrence: US)
  Receive Date: 20130405
  Receipt Date: 20130405
  Transmission Date: 20140414
  Serious: No
  Sender: FDA-Public Use
  Company Number: US-009507513-2012SP034348

PATIENT
  Sex: Male

DRUGS (1)
  1. DR. SCHOLL^S ODOR DESTROYERS ALL DAY DEODORANT POWDER [Suspect]
     Dosage: UNK UNK, UNKNOWN
     Route: 061

REACTIONS (1)
  - Pruritus [Unknown]
